FAERS Safety Report 4389578-4 (Version None)
Quarter: 2004Q2

REPORT INFORMATION
  Report Type: 
  Country: None (occurrence: None)
  Receive Date: 20040629
  Receipt Date: 20040311
  Transmission Date: 20050107
  Serious: Yes (Hospitalization)
  Sender: FDA-Public Use
  Company Number: US-JNJFOC-20040300188

PATIENT
  Age: 46 Year
  Sex: Male

DRUGS (2)
  1. DURAGESIC [Suspect]
     Indication: BACK PAIN
     Dosage: 75 UG/HR, TRANSDERMAL
     Route: 062
     Dates: start: 20040122, end: 20040222
  2. TYLOX [Suspect]
     Indication: BACK PAIN
     Dosage: 10 MG OXYCODONE/500 MG ACETAMINOPHEN: ONE CAPSULE EVERY FIVE TO SIX HOURS

REACTIONS (4)
  - DEPRESSED LEVEL OF CONSCIOUSNESS [None]
  - DYSPNOEA [None]
  - OVERDOSE [None]
  - UNEVALUABLE EVENT [None]
